FAERS Safety Report 5339186-3 (Version None)
Quarter: 2007Q2

REPORT INFORMATION
  Report Type: 
  Country: None (occurrence: None)
  Receive Date: 20070330
  Receipt Date: 20060607
  Transmission Date: 20071010
  Serious: Yes (Hospitalization)
  Sender: FDA-Public Use
  Company Number: 2006EN000126

PATIENT
  Age: 2 Year
  Sex: Male
  Weight: 12 kg

DRUGS (3)
  1. ONCASPAR [Suspect]
     Indication: B PRECURSOR TYPE ACUTE LEUKAEMIA
     Dosage: 1450 IU;X1;IM
     Route: 030
     Dates: start: 20060128, end: 20060128
  2. ONCASPAR [Suspect]
     Indication: B PRECURSOR TYPE ACUTE LEUKAEMIA
     Dosage: 1450 IU;X1;IM
     Route: 030
     Dates: start: 20060331, end: 20060331
  3. ONCASPAR [Suspect]
     Indication: B PRECURSOR TYPE ACUTE LEUKAEMIA
     Dosage: 1450 IU;X1;IM
     Route: 030
     Dates: start: 20060421, end: 20060421

REACTIONS (5)
  - ANAPHYLACTIC REACTION [None]
  - COUGH [None]
  - DYSPNOEA [None]
  - ERYTHEMA [None]
  - VOMITING [None]
